FAERS Safety Report 4276451-5 (Version None)
Quarter: 2004Q1

REPORT INFORMATION
  Report Type: 
  Country: None (occurrence: None)
  Receive Date: 20040121
  Receipt Date: 20040121
  Transmission Date: 20041129
  Serious: Yes (Hospitalization)
  Sender: FDA-Public Use
  Company Number: None

PATIENT
  Age: 29 Year
  Sex: Female
  Weight: 66 kg

DRUGS (1)
  1. TERBINAFINE HCL [Suspect]
     Indication: RASH
     Dosage: 250 MG PO DAILY/ APPROX. 15 DOSES
     Route: 048

REACTIONS (11)
  - CHILLS [None]
  - HEAT RASH [None]
  - NAUSEA [None]
  - PEMPHIGUS [None]
  - PYREXIA [None]
  - RASH [None]
  - SKIN DESQUAMATION [None]
  - SKIN LESION [None]
  - STAPHYLOCOCCAL INFECTION [None]
  - STEVENS-JOHNSON SYNDROME [None]
  - VOMITING [None]
